FAERS Safety Report 6550142-X (Version None)
Quarter: 2010Q1

REPORT INFORMATION
  Report Type: 
  Country: None (occurrence: None)
  Receive Date: 20100119
  Receipt Date: 20100105
  Transmission Date: 20100710
  Serious: Yes (Other)
  Sender: FDA-Public Use
  Company Number: A-CH2010-32972

PATIENT
  Age: 47 Year
  Sex: Female

DRUGS (7)
  1. TRACLEER [Suspect]
     Indication: SKIN ULCER
     Dosage: 125 MG, BID, ORAL; 62.5 MG, BID, ORAL
     Route: 048
     Dates: start: 20080111, end: 20080208
  2. TRACLEER [Suspect]
     Indication: SKIN ULCER
     Dosage: 125 MG, BID, ORAL; 62.5 MG, BID, ORAL
     Route: 048
     Dates: start: 20080209
  3. CLARITHROMYCIN [Suspect]
     Indication: SUPERINFECTION
     Dosage: 125 MG, BID, ORAL
     Route: 048
     Dates: start: 20080220
  4. ILOPROST [Concomitant]
  5. NIFEDIPINE [Concomitant]
  6. ASPIRIN [Concomitant]
  7. PENTOXIFYLLINE [Concomitant]

REACTIONS (3)
  - DRUG INTERACTION [None]
  - HEPATITIS ACUTE [None]
  - INFECTED SKIN ULCER [None]
